FAERS Safety Report 6760992-2 (Version None)
Quarter: 2010Q2

REPORT INFORMATION
  Report Type: 
  Country: None (occurrence: None)
  Receive Date: 20100608
  Receipt Date: 20100602
  Transmission Date: 20101027
  Serious: Yes (Other)
  Sender: FDA-Public Use
  Company Number: A0862638A

PATIENT
  Age: 50 Year
  Sex: Male
  Weight: 124.1 kg

DRUGS (8)
  1. AVANDAMET [Suspect]
     Dosage: 1TAB TWICE PER DAY
     Dates: start: 20060101
  2. AVANDIA [Suspect]
     Indication: DIABETES MELLITUS
     Dosage: 4MG PER DAY
     Route: 048
  3. AMARYL [Concomitant]
  4. TRICOR [Concomitant]
  5. ALTACE [Concomitant]
  6. FORTAMET [Concomitant]
  7. DILTIAZEM [Concomitant]
  8. GLIMEPIRIDE [Concomitant]

REACTIONS (2)
  - CEREBROVASCULAR ACCIDENT [None]
  - TRANSIENT ISCHAEMIC ATTACK [None]
